FAERS Safety Report 5126015-6 (Version None)
Quarter: 2006Q4

REPORT INFORMATION
  Report Type: 
  Country: None (occurrence: None)
  Receive Date: 20061012
  Receipt Date: 20061005
  Transmission Date: 20070319
  Serious: Yes (Hospitalization, Other)
  Sender: FDA-Public Use
  Company Number: GB-MERCK-0610GBR00066

PATIENT
  Age: 43 Year
  Sex: Male

DRUGS (9)
  1. HYDROCORTONE [Suspect]
     Indication: BURKITT'S LYMPHOMA
     Route: 048
  2. PREDNISOLONE [Suspect]
     Indication: BURKITT'S LYMPHOMA
     Route: 065
  3. CYCLOPHOSPHAMIDE [Concomitant]
     Indication: BURKITT'S LYMPHOMA
     Route: 065
  4. CYTARABINE [Concomitant]
     Indication: BURKITT'S LYMPHOMA
     Route: 065
  5. DOXORUBICIN [Concomitant]
     Indication: BURKITT'S LYMPHOMA
     Route: 065
  6. METHOTREXATE [Concomitant]
     Indication: BURKITT'S LYMPHOMA
     Route: 065
  7. RITONAVIR [Concomitant]
     Route: 065
  8. SAQUINAVIR [Concomitant]
     Route: 065
  9. VINCRISTINE SULFATE [Concomitant]
     Indication: BURKITT'S LYMPHOMA
     Route: 065

REACTIONS (6)
  - BACK PAIN [None]
  - COMPRESSION FRACTURE [None]
  - HEADACHE [None]
  - OSTEONECROSIS [None]
  - OSTEOPOROSIS [None]
  - PAIN IN EXTREMITY [None]
